FAERS Safety Report 8290783-5 (Version None)
Quarter: 2012Q2

REPORT INFORMATION
  Report Type: 
  Country: None (occurrence: None)
  Receive Date: 20120417
  Receipt Date: 20120412
  Transmission Date: 20120825
  Serious: Yes (Death, Other)
  Sender: FDA-Public Use
  Company Number: US-ASTRAZENECA-2012SE24064

PATIENT
  Age: 83 Year
  Sex: Male
  Weight: 85.7 kg

DRUGS (3)
  1. PLAVIX [Concomitant]
  2. BRILINTA [Suspect]
     Route: 048
     Dates: start: 20111001, end: 20111201
  3. ASPIRIN [Concomitant]

REACTIONS (4)
  - THROMBOSIS IN DEVICE [None]
  - DEATH [None]
  - DYSPHAGIA [None]
  - OFF LABEL USE [None]
